FAERS Safety Report 21908918 (Version 2)
Quarter: 2023Q1

REPORT INFORMATION
  Report Type: Spontaneous
  Country: GB (occurrence: GB)
  Receive Date: 20230125
  Receipt Date: 20230127
  Transmission Date: 20230417
  Serious: Yes (Disabling, Other)
  Sender: FDA-Public Use
  Company Number: GB-MHRA-MED-202301231326383730-JRFVC

PATIENT
  Age: 48 Year
  Sex: Male

DRUGS (1)
  1. HUMIRA [Suspect]
     Active Substance: ADALIMUMAB
     Indication: Ankylosing spondylitis
     Route: 058
     Dates: start: 2009

REACTIONS (9)
  - Neurological symptom [Not Recovered/Not Resolved]
  - Muscle spasms [Unknown]
  - Mobility decreased [Unknown]
  - Neurological examination abnormal [Unknown]
  - CSF oligoclonal band present [Unknown]
  - Musculoskeletal stiffness [Unknown]
  - Asthenia [Unknown]
  - Disability [Unknown]
  - Demyelination [Unknown]

NARRATIVE: CASE EVENT DATE: 20140601
